FAERS Safety Report 12996295 (Version 1)
Quarter: 2016Q4

REPORT INFORMATION
  Report Type: Other
  Country: GB (occurrence: US)
  Receive Date: 20161203
  Receipt Date: 20161203
  Transmission Date: 20170207
  Serious: Yes (Death, Life-Threatening, Other)
  Sender: FDA-Public Use
  Company Number: US-CLARIS PHARMASERVICES-1060364

PATIENT
  Age: 71 Year
  Sex: Female

DRUGS (1)
  1. FLUCONAZOLE. [Suspect]
     Active Substance: FLUCONAZOLE
     Indication: OESOPHAGEAL CANDIDIASIS
     Route: 042

REACTIONS (4)
  - Vanishing bile duct syndrome [Fatal]
  - Hepatic failure [Fatal]
  - Condition aggravated [Fatal]
  - Death [Fatal]
